FAERS Safety Report 9008624 (Version 1)
Quarter: 2013Q1

REPORT INFORMATION
  Report Type: Spontaneous
  Country: US (occurrence: US)
  Receive Date: 20130111
  Receipt Date: 20130111
  Transmission Date: 20140127
  Serious: Yes (Hospitalization)
  Sender: FDA-Public Use
  Company Number: US-ELI_LILLY_AND_COMPANY-US201301001913

PATIENT
  Sex: Female

DRUGS (4)
  1. CYMBALTA [Suspect]
     Indication: FIBROMYALGIA
     Dosage: 50 MG, UNKNOWN
     Dates: start: 201108, end: 201111
  2. CYMBALTA [Suspect]
     Dosage: 60 MG, UNKNOWN
  3. IBUPROFEN [Concomitant]
     Dosage: UNK, PRN
  4. DOCUSATE SODIUM [Concomitant]
     Dosage: UNK, PRN

REACTIONS (3)
  - Premature labour [Recovered/Resolved]
  - Gestational diabetes [Recovered/Resolved]
  - Exposure during pregnancy [Recovered/Resolved]
